FAERS Safety Report 5808818-5 (Version None)
Quarter: 2008Q3

REPORT INFORMATION
  Report Type: 
  Country: None (occurrence: None)
  Receive Date: 20080714
  Receipt Date: 20080627
  Transmission Date: 20090109
  Serious: Yes (Hospitalization)
  Sender: FDA-Public Use
  Company Number: B0527381A

PATIENT
  Age: 85 Year
  Sex: Female

DRUGS (16)
  1. AUGMENTIN '125' [Suspect]
     Indication: INFECTION
     Route: 048
     Dates: start: 20080502, end: 20080508
  2. ENDOXAN [Suspect]
     Route: 042
     Dates: start: 20080410, end: 20080609
  3. UROMITEXAN [Suspect]
     Route: 042
     Dates: start: 20080410, end: 20080609
  4. CORTANCYL [Suspect]
     Route: 048
     Dates: start: 20070601
  5. CLAFORAN [Suspect]
     Indication: INFECTION
     Route: 042
     Dates: start: 20080425, end: 20080502
  6. OFLOCET [Suspect]
     Indication: INFECTION
     Route: 042
     Dates: start: 20080425, end: 20080502
  7. BACTRIM [Suspect]
     Indication: INFECTION
     Route: 048
     Dates: start: 20080426, end: 20080505
  8. FLAGYL [Suspect]
     Indication: INFECTION
     Route: 048
     Dates: start: 20080426, end: 20080502
  9. RULID [Suspect]
     Indication: INFECTION
     Route: 048
     Dates: start: 20080502, end: 20080506
  10. LEVOTHYROX [Concomitant]
     Indication: DRUG USE FOR UNKNOWN INDICATION
     Dosage: 75MCG PER DAY
     Route: 048
  11. CACIT D3 [Concomitant]
     Indication: DRUG USE FOR UNKNOWN INDICATION
     Route: 065
  12. ACTONEL [Concomitant]
     Indication: DRUG USE FOR UNKNOWN INDICATION
     Route: 065
  13. KARDEGIC [Concomitant]
     Indication: DRUG USE FOR UNKNOWN INDICATION
     Route: 065
  14. NEXIUM [Concomitant]
     Indication: DRUG USE FOR UNKNOWN INDICATION
     Dosage: 20MG PER DAY
     Route: 065
  15. KYTRIL [Concomitant]
     Indication: VOMITING
     Route: 065
     Dates: start: 20080401
  16. PRIMPERAN TAB [Concomitant]
     Indication: VOMITING
     Route: 065
     Dates: start: 20080401, end: 20080401

REACTIONS (12)
  - AGRANULOCYTOSIS [None]
  - BLOOD PRESSURE INCREASED [None]
  - CHILLS [None]
  - LUNG DISORDER [None]
  - PLEURISY [None]
  - POLYURIA [None]
  - PRODUCTIVE COUGH [None]
  - PYREXIA [None]
  - RALES [None]
  - SHOCK [None]
  - TACHYCARDIA [None]
  - TREMOR [None]
